FAERS Safety Report 7762060-X (Version None)
Quarter: 2011Q3

REPORT INFORMATION
  Report Type: 
  Country: None (occurrence: None)
  Receive Date: 20110920
  Receipt Date: 20110920
  Transmission Date: 20111222
  Serious: Yes (Other)
  Sender: FDA-Public Use
  Company Number: None

PATIENT
  Age: 31 Year
  Sex: Female
  Weight: 84.821 kg

DRUGS (1)
  1. TRI-PREVIFEM [Suspect]
     Indication: CONTRACEPTION
     Dosage: 28 DAY REGIMEN
     Route: 048
     Dates: start: 20110814, end: 20110911

REACTIONS (4)
  - MOOD SWINGS [None]
  - MUSCLE SPASMS [None]
  - DEPRESSION [None]
  - IRRITABILITY [None]
